FAERS Safety Report 20798055 (Version 1)
Quarter: 2022Q2

REPORT INFORMATION
  Report Type: Report from Study
  Country: US (occurrence: US)
  Receive Date: 20220506
  Receipt Date: 20220506
  Transmission Date: 20220721
  Serious: Yes (Hospitalization)
  Sender: FDA-Public Use
  Company Number: US-ABBVIE-22K-163-4384203-00

PATIENT
  Sex: Male

DRUGS (2)
  1. IMBRUVICA [Suspect]
     Active Substance: IBRUTINIB
     Indication: Chronic lymphocytic leukaemia
     Route: 048
     Dates: start: 20180327, end: 2022
  2. IMBRUVICA [Suspect]
     Active Substance: IBRUTINIB
     Route: 048
     Dates: start: 20220331, end: 20220415

REACTIONS (8)
  - Blood glucose abnormal [Unknown]
  - Renal failure [Unknown]
  - Pneumonia [Unknown]
  - Chronic lymphocytic leukaemia [Unknown]
  - Atrial fibrillation [Unknown]
  - Fall [Unknown]
  - Unevaluable event [Unknown]
  - Illness [Unknown]

NARRATIVE: CASE EVENT DATE: 20220101
